FAERS Safety Report 7936862-0 (Version None)
Quarter: 2011Q4

REPORT INFORMATION
  Report Type: 
  Country: None (occurrence: None)
  Receive Date: 20111123
  Receipt Date: 20111123
  Transmission Date: 20120403
  Serious: Yes (Other)
  Sender: FDA-Public Use
  Company Number: None

PATIENT
  Sex: Female

DRUGS (1)
  1. ZOLEDRONIC ACID [Suspect]
     Indication: OSTEOPOROSIS
     Dosage: 5MG
     Route: 041
     Dates: start: 20111108, end: 20111108

REACTIONS (3)
  - FLUSHING [None]
  - TACHYCARDIA [None]
  - INFUSION RELATED REACTION [None]
